FAERS Safety Report 10744800 (Version 1)
Quarter: 2015Q1

REPORT INFORMATION
  Report Type: Spontaneous
  Country: US (occurrence: None)
  Receive Date: 20150126
  Receipt Date: 20150126
  Transmission Date: 20150721
  Serious: No
  Sender: FDA-Public Use
  Company Number: None

PATIENT
  Age: 45 Year
  Sex: Female
  Weight: 57.15 kg

DRUGS (3)
  1. PANTOPRAZOLE [Suspect]
     Active Substance: PANTOPRAZOLE SODIUM
     Indication: GASTROOESOPHAGEAL REFLUX DISEASE
     Dosage: 1 PILL, ONCE DAILY
     Route: 048
     Dates: start: 20150101, end: 20150125
  2. PANTOPRAZOLE [Suspect]
     Active Substance: PANTOPRAZOLE SODIUM
     Indication: ULCER
     Dosage: 1 PILL, ONCE DAILY
     Route: 048
     Dates: start: 20150101, end: 20150125
  3. PANTOPRAZOLE [Suspect]
     Active Substance: PANTOPRAZOLE SODIUM
     Indication: DYSPEPSIA
     Dosage: 1 PILL, ONCE DAILY
     Route: 048
     Dates: start: 20150101, end: 20150125

REACTIONS (4)
  - Product formulation issue [None]
  - Product quality issue [None]
  - Eructation [None]
  - Abdominal pain upper [None]

NARRATIVE: CASE EVENT DATE: 20150119
